FAERS Safety Report 7051194-3 (Version None)
Quarter: 2010Q4

REPORT INFORMATION
  Report Type: 
  Country: None (occurrence: None)
  Receive Date: 20101014
  Receipt Date: 20101001
  Transmission Date: 20110411
  Serious: Yes (Hospitalization)
  Sender: FDA-Public Use
  Company Number: 2010-3378

PATIENT
  Age: 82 Year
  Sex: Male

DRUGS (12)
  1. DYSPORT [Suspect]
     Indication: MUSCLE CONTRACTURE
     Dosage: 1500 UNITS (1500 UNITS, SINGLE CYCLE), INTRAMUSCULAR
     Route: 030
     Dates: start: 20100805, end: 20100805
  2. DYSPORT [Suspect]
     Indication: OFF LABEL USE
     Dosage: 1500 UNITS (1500 UNITS, SINGLE CYCLE), INTRAMUSCULAR
     Route: 030
     Dates: start: 20100805, end: 20100805
  3. BOTULINUM TOXIN TYPE A [Suspect]
  4. AVODART [Concomitant]
  5. CELEBREX [Concomitant]
  6. DIGOXIN [Concomitant]
  7. LISINOPRIL (LISIONOPRIL) [Concomitant]
  8. MIRAPEX [Concomitant]
  9. ASPIRIN [Concomitant]
  10. FENTANYL-100 [Concomitant]
  11. NEURONTIN [Concomitant]
  12. LIDODERM [Concomitant]

REACTIONS (1)
  - UNEVALUABLE EVENT [None]
